FAERS Safety Report 5740717-X (Version None)
Quarter: 2008Q2

REPORT INFORMATION
  Report Type: 
  Country: None (occurrence: None)
  Receive Date: 20080516
  Receipt Date: 20080508
  Transmission Date: 20081010
  Serious: Yes (Other)
  Sender: FDA-Public Use
  Company Number: NL-PFIZER INC-2008029471

PATIENT
  Sex: Male
  Weight: 87 kg

DRUGS (2)
  1. CAMPTO [Suspect]
     Indication: COLON CANCER METASTATIC
     Route: 042
  2. TAVEGYL [Concomitant]
     Indication: PROPHYLAXIS
     Route: 048

REACTIONS (2)
  - BLISTER [None]
  - RASH [None]
